FAERS Safety Report 6197995-5 (Version None)
Quarter: 2009Q2

REPORT INFORMATION
  Report Type: 
  Country: None (occurrence: None)
  Receive Date: 20090521
  Receipt Date: 20090514
  Transmission Date: 20091009
  Serious: Yes (Hospitalization, Other)
  Sender: FDA-Public Use
  Company Number: US-ELI_LILLY_AND_COMPANY-US200905003123

PATIENT
  Sex: Female

DRUGS (8)
  1. FORTEO [Suspect]
     Indication: OSTEOPOROSIS
     Dosage: 20 UG, DAILY (1/D)
     Dates: start: 20070530
  2. LEXAPRO [Concomitant]
  3. NORVASC [Concomitant]
  4. TRAVATAN [Concomitant]
  5. SIMVASTATIN [Concomitant]
  6. ERGOCALCIFEROL [Concomitant]
  7. MULTI-VITAMIN [Concomitant]
  8. PRESERVISION LUTEIN EYE VITA.+MIN.SUP.SOFTG. [Concomitant]

REACTIONS (3)
  - CEREBRAL HAEMATOMA [None]
  - FALL [None]
  - LOSS OF CONSCIOUSNESS [None]
